FAERS Safety Report 10013447 (Version 1)
Quarter: 2014Q1

REPORT INFORMATION
  Report Type: Spontaneous
  Country: US (occurrence: US)
  Receive Date: 20140314
  Receipt Date: 20140314
  Transmission Date: 20141002
  Serious: No
  Sender: FDA-Public Use
  Company Number: US-B.I. PHARMACEUTICALS,INC./RIDGEFIELD-2014-BI-10166BP

PATIENT
  Age: 74 Year
  Sex: Male
  Weight: 118 kg

DRUGS (3)
  1. COMBIVENT [Suspect]
     Indication: ASTHMA
     Dosage: DOSE PER APPLICATION: 18 MCG / 103 MCG; DAILY DOSE: 72 MCG/ 412 MCG
     Route: 055
     Dates: start: 2012, end: 2012
  2. COMBIVENT RESPIMAT [Concomitant]
     Indication: ASTHMA
     Dosage: FORMULATION: INHALATION AEROSOL, DOSE PER APPLICATION: 20 MCG/100 MCG; DAILY DOSE: 80 MCG/400 MCG
     Route: 055
  3. ADVAIR [Concomitant]
     Indication: ASTHMA
     Dosage: FORMULATION: INHALATION AEROSOL; STRENGTH: 250/50; DAILY DOSE: 500/100
     Route: 055

REACTIONS (4)
  - Pneumonia [Recovered/Resolved]
  - Viral infection [Not Recovered/Not Resolved]
  - Dyspnoea [Not Recovered/Not Resolved]
  - Off label use [Unknown]
